FAERS Safety Report 8156652-6 (Version None)
Quarter: 2012Q1

REPORT INFORMATION
  Report Type: 
  Country: None (occurrence: None)
  Receive Date: 20120103
  Receipt Date: 20111005
  Transmission Date: 20120608
  Serious: No
  Sender: FDA-Public Use
  Company Number: AE-2011-002060

PATIENT
  Age: 48 Year
  Sex: Female
  Weight: 81.6475 kg

DRUGS (5)
  1. INCIVEK [Suspect]
     Dosage: 2250 MG (750 MG,3 IN 1 D),ORAL
     Route: 048
     Dates: start: 20111001
  2. PEGASYS [Concomitant]
  3. RIBAVIRIN [Concomitant]
  4. NEXIUM [Concomitant]
  5. CITALOPRAM HYDROBROMIDE [Concomitant]

REACTIONS (4)
  - NAUSEA [None]
  - DRUG DOSE OMISSION [None]
  - CHILLS [None]
  - PAIN IN EXTREMITY [None]
